FAERS Safety Report 5884520-9 (Version None)
Quarter: 2008Q3

REPORT INFORMATION
  Report Type: 
  Country: None (occurrence: None)
  Receive Date: 20080916
  Receipt Date: 20080910
  Transmission Date: 20090109
  Serious: Yes (Death, Hospitalization)
  Sender: FDA-Public Use
  Company Number: BR-JNJFOC-20080902459

PATIENT
  Sex: Male

DRUGS (1)
  1. ULTRACET [Suspect]
     Indication: PAIN
     Dosage: ACETAMINOPHEN 325MG AND TRAMADOL HCL 37.5MG
     Route: 065

REACTIONS (2)
  - CONSTIPATION [None]
  - DEATH [None]
